FAERS Safety Report 9486542 (Version 1)
Quarter: 2013Q3

REPORT INFORMATION
  Report Type: Spontaneous
  Country: FR (occurrence: FR)
  Receive Date: 20130829
  Receipt Date: 20130829
  Transmission Date: 20140515
  Serious: Yes (Disabling)
  Sender: FDA-Public Use
  Company Number: FR-SANOFI-AVENTIS-2013SA084793

PATIENT
  Age: 4 Month
  Sex: Female
  Weight: 8 kg

DRUGS (6)
  1. STILNOX [Suspect]
     Indication: EXPOSURE DURING PREGNANCY
     Route: 064
     Dates: end: 20120319
  2. INFANRIX [Suspect]
     Indication: IMMUNISATION
     Dosage: FREQ: TWICE
     Route: 030
     Dates: start: 20120521, end: 20120521
  3. INFANRIX [Suspect]
     Indication: IMMUNISATION
     Dosage: FREQ: TWICE
     Route: 030
     Dates: start: 20120724, end: 20120724
  4. PREVENAR [Suspect]
     Indication: IMMUNISATION
     Dosage: FREQ: TWICE
     Route: 030
     Dates: start: 20120521, end: 20120521
  5. PREVENAR [Suspect]
     Indication: IMMUNISATION
     Dosage: FREQ: TWICE
     Route: 030
     Dates: start: 20120724, end: 20120724
  6. INFANRIX [Suspect]
     Indication: IMMUNISATION
     Route: 030
     Dates: start: 20120619, end: 20120619

REACTIONS (3)
  - Developmental delay [Not Recovered/Not Resolved]
  - Foetal exposure during pregnancy [Unknown]
  - Off label use [Unknown]
